FAERS Safety Report 7582022 (Version 3)
Quarter: 2012Q4

REPORT INFORMATION
  Report Type: 
  Country: HK (occurrence: HK)
  Receive Date: 20100913
  Receipt Date: 20120828
  Transmission Date: 20130627
  Serious: Yes (Disabling)
  Sender: FDA-Public Use
  Company Number: HK-BAYER-201038069GPV

PATIENT
  Age: 53 Year
  Sex: Female
  Weight: 41 kg

DRUGS (4)
  1. SORAFENIB [Suspect]
     Indication: HEPATIC NEOPLASM MALIGNANT
     Route: 048
     Dates: start: 20100719, end: 20100808
  2. SORAFENIB [Suspect]
     Indication: HEPATIC NEOPLASM MALIGNANT
     Dosage: 200 mg, QD
     Route: 048
     Dates: start: 20100809, end: 20100913
  3. SORAFENIB [Suspect]
     Indication: HEPATIC NEOPLASM MALIGNANT
     Dosage: 200 mg, QD
     Route: 048
     Dates: start: 20101019, end: 20101028
  4. NORVASC [Concomitant]
     Indication: HYPERTENSION
     Dosage: 5 mg (Daily Dose), , oral
     Route: 048
     Dates: start: 200704

REACTIONS (4)
  - Skin toxicity [Recovered/Resolved]
  - Skin ulcer [Recovered/Resolved]
  - Blister [Recovered/Resolved]
  - Pain in extremity [Recovered/Resolved]
